FAERS Safety Report 6238436-9 (Version None)
Quarter: 2009Q2

REPORT INFORMATION
  Report Type: 
  Country: None (occurrence: None)
  Receive Date: 20090618
  Receipt Date: 20090605
  Transmission Date: 20091009
  Serious: Yes (Life-Threatening)
  Sender: FDA-Public Use
  Company Number: 2009AL003872

PATIENT
  Sex: Female

DRUGS (1)
  1. TICLOPIDINE HCL [Suspect]

REACTIONS (4)
  - ANAEMIA [None]
  - COAGULATION TEST ABNORMAL [None]
  - HEPATORENAL FAILURE [None]
  - METABOLIC ACIDOSIS [None]
